FAERS Safety Report 8390729-5 (Version None)
Quarter: 2012Q2

REPORT INFORMATION
  Report Type: 
  Country: None (occurrence: None)
  Receive Date: 20120529
  Receipt Date: 20120517
  Transmission Date: 20120825
  Serious: Yes (Other)
  Sender: FDA-Public Use
  Company Number: IE-JNJFOC-20120411090

PATIENT
  Age: 82 Year
  Sex: Female

DRUGS (2)
  1. PALEXIA SR 50MG [Suspect]
     Indication: PAIN
     Route: 048
     Dates: start: 20120322, end: 20120323
  2. AN UNKNOWN MEDICATION [Concomitant]
     Route: 065

REACTIONS (4)
  - NAUSEA [None]
  - MUSCULOSKELETAL STIFFNESS [None]
  - VOMITING [None]
  - HYPERHIDROSIS [None]
